FAERS Safety Report 7924083-7 (Version None)
Quarter: 2011Q4

REPORT INFORMATION
  Report Type: 
  Country: None (occurrence: None)
  Receive Date: 20111117
  Receipt Date: 20110214
  Transmission Date: 20120403
  Serious: Yes (Hospitalization)
  Sender: FDA-Public Use
  Company Number: US-AMGEN-USASP2011006795

PATIENT
  Age: 61 Year
  Sex: Female

DRUGS (12)
  1. RECLAST [Concomitant]
  2. ASPIRIN [Concomitant]
  3. ASPIRIN [Concomitant]
  4. PLAQUENIL [Concomitant]
  5. FELDENE [Concomitant]
  6. CODEINE SUL TAB [Concomitant]
  7. LOTREL [Concomitant]
  8. LISINOPRIL [Concomitant]
  9. ENBREL [Suspect]
     Indication: RHEUMATOID ARTHRITIS
     Dosage: UNK
     Dates: end: 20101127
  10. DILAUDID [Concomitant]
  11. AMLODIPINE [Concomitant]
  12. TYLENOL (CAPLET) [Concomitant]

REACTIONS (5)
  - STAPHYLOCOCCAL OSTEOMYELITIS [None]
  - MENISCUS LESION [None]
  - VARICOSE VEIN [None]
  - OEDEMA [None]
  - SKIN DISCOLOURATION [None]
